FAERS Safety Report 8465895-3 (Version None)
Quarter: 2012Q2

REPORT INFORMATION
  Report Type: 
  Country: None (occurrence: None)
  Receive Date: 20120626
  Receipt Date: 20120622
  Transmission Date: 20120825
  Serious: Yes (Other)
  Sender: FDA-Public Use
  Company Number: US-PFIZER INC-2012151435

PATIENT

DRUGS (20)
  1. TRAMADOL HYDROCHLORIDE [Concomitant]
     Dosage: 50 MG, 1 OR 2 AS NEEDED
  2. POTASSIUM GLUCONATE [Concomitant]
     Dosage: 595 MG, 1X/DAY
  3. CYCLOBENZAPRINE [Concomitant]
     Dosage: 10 MG, ONE AS NEEDED
  4. ZYRTEC [Suspect]
     Dosage: 10 MG, 1X/DAY
     Route: 048
  5. NEXIUM [Concomitant]
     Dosage: 40 MG, 1X/DAY
  6. PROMETHAZINE [Concomitant]
     Dosage: 25 MG, ONE AS NEEDED
  7. AMBIEN [Concomitant]
     Dosage: 10 MG, UNK
  8. ASPIRIN [Concomitant]
     Dosage: 81 MG, 1X/DAY
  9. SINGULAIR [Concomitant]
     Dosage: 10 MG, 1X/DAY
  10. ZOLOFT [Suspect]
     Dosage: 100 MG, 1X/DAY
     Route: 048
  11. NIFEDIAC CC [Concomitant]
     Dosage: 60 MG, 1X/DAY
  12. CETIRIZINE HYDROCHLORIDE [Concomitant]
     Dosage: 10 MG, 1X/DAY
  13. NASONEX [Concomitant]
     Dosage: 50 UG, (1 OR 2 SPRAY DAILY)
  14. AMOXICILLIN [Concomitant]
     Dosage: 500 MG, AS NEEDED
  15. CIPROFLOXACIN [Concomitant]
     Dosage: 500 MG, AS NEEDED
  16. PROCARDIA XL [Suspect]
     Dosage: 100 MG, 1X/DAY (100 MG XL)
     Route: 048
  17. LIVALO [Concomitant]
     Dosage: 4 MG, 1X/DAY
  18. ASTEPRO SPRAY [Concomitant]
     Dosage: UNK (1 OR 2 SPRAY DAILY)
  19. MELATONIN [Concomitant]
     Dosage: 3 MG, (2 A NIGHT)
  20. OXYCODONE [Concomitant]
     Dosage: 5 MG, 1 AS NEEDED

REACTIONS (13)
  - KERATOCONUS [None]
  - FIBROMYALGIA [None]
  - IRRITABLE BOWEL SYNDROME [None]
  - ARTHRITIS [None]
  - DEPRESSION [None]
  - SLEEP APNOEA SYNDROME [None]
  - HYPERSENSITIVITY [None]
  - TENDON RUPTURE [None]
  - GASTROOESOPHAGEAL REFLUX DISEASE [None]
  - HYPERTENSION [None]
  - HIATUS HERNIA [None]
  - CARPAL TUNNEL SYNDROME [None]
  - TEMPOROMANDIBULAR JOINT SYNDROME [None]
